FAERS Safety Report 9013878 (Version 2)
Quarter: 2013Q2

REPORT INFORMATION
  Report Type: Report from Study
  Country: JP (occurrence: JP)
  Receive Date: 20130115
  Receipt Date: 20130625
  Transmission Date: 20140414
  Serious: Yes (Other)
  Sender: FDA-Public Use
  Company Number: PHHY2013JP002591

PATIENT
  Age: 48 Year
  Sex: Male

DRUGS (12)
  1. FTY 720 [Suspect]
     Indication: MULTIPLE SCLEROSIS RELAPSE
     Dosage: 0.5 MG, QD
     Route: 048
     Dates: start: 20120615, end: 20121203
  2. FTY 720 [Suspect]
     Dosage: 0.5 MG, EVERY THREE DAYS
     Route: 048
     Dates: start: 20130116
  3. FTY 720 [Suspect]
     Dosage: 0.5 MG, QOD
     Route: 048
     Dates: start: 20130408
  4. SOLETON [Concomitant]
     Dosage: 160 MG, QD
     Route: 048
  5. SELBEX [Concomitant]
     Dosage: 100 MG, QD
     Route: 048
  6. FAMOTIDINE [Concomitant]
     Dosage: 20 MG, QD
     Route: 048
  7. TEGRETOL [Concomitant]
     Dosage: 100 MG, QD
     Route: 048
  8. MYSLEE [Concomitant]
     Dosage: 10 MG, QD
     Route: 048
  9. BENZALIN [Concomitant]
     Dosage: 5 MG, QD
     Route: 048
  10. ADOFEED [Concomitant]
     Dosage: UNK
     Route: 051
  11. BETAFERON [Concomitant]
     Dosage: 8 MIU, Q48H
     Route: 058
     Dates: start: 20100809, end: 20120613
  12. ADALAT L [Concomitant]
     Dosage: 20 MG, QD
     Route: 048

REACTIONS (2)
  - Hepatic function abnormal [Not Recovered/Not Resolved]
  - Lymphocyte count decreased [Unknown]
